FAERS Safety Report 8303515-9 (Version None)
Quarter: 2012Q2

REPORT INFORMATION
  Report Type: 
  Country: None (occurrence: None)
  Receive Date: 20120418
  Receipt Date: 20110530
  Transmission Date: 20120825
  Serious: No
  Sender: FDA-Public Use
  Company Number: AECAN201100143

PATIENT
  Age: 64 Year
  Sex: Female

DRUGS (6)
  1. SPIRIVA [Concomitant]
  2. ADVAIR DISKUS 100/50 [Concomitant]
  3. CICLESONIDE [Concomitant]
  4. BRICANYL [Concomitant]
  5. PROLASTIN-C [Suspect]
     Indication: RESPIRATORY DISORDER
     Dosage: 3400 MG;QW;IV
     Route: 042
     Dates: start: 20110201
  6. PREDNISONE [Concomitant]

REACTIONS (4)
  - CHRONIC OBSTRUCTIVE PULMONARY DISEASE [None]
  - CONDITION AGGRAVATED [None]
  - FORCED EXPIRATORY VOLUME DECREASED [None]
  - PRODUCT FORMULATION ISSUE [None]
